FAERS Safety Report 14363529 (Version 1)
Quarter: 2018Q1

REPORT INFORMATION
  Report Type: Report from Study
  Country: US (occurrence: US)
  Receive Date: 20180108
  Receipt Date: 20180108
  Transmission Date: 20180509
  Serious: Yes (Hospitalization)
  Sender: FDA-Public Use
  Company Number: US-PFIZER INC-2018003833

PATIENT

DRUGS (1)
  1. CRIZOTINIB [Suspect]
     Active Substance: CRIZOTINIB
     Dosage: 250 MG, UNK
     Dates: start: 20140227

REACTIONS (3)
  - Upper respiratory tract infection [Unknown]
  - Hypoxia [Unknown]
  - Respiratory failure [Unknown]

NARRATIVE: CASE EVENT DATE: 2014
